FAERS Safety Report 21811451 (Version 1)
Quarter: 2023Q1

REPORT INFORMATION
  Report Type: Spontaneous
  Country: US (occurrence: US)
  Receive Date: 20230103
  Receipt Date: 20230103
  Transmission Date: 20230418
  Serious: Yes (Hospitalization, Other)
  Sender: FDA-Public Use
  Company Number: AG10-301

PATIENT
  Age: 70 Year
  Sex: Male

DRUGS (15)
  1. ZAROXOLYN [Suspect]
     Active Substance: METOLAZONE
     Indication: Cardiac failure
     Dosage: 2.5 MG AS NEEDED
     Route: 048
     Dates: start: 20200206, end: 20200701
  2. WARFARIN SODIUM [Concomitant]
     Active Substance: WARFARIN SODIUM
     Indication: Atrial fibrillation
     Dosage: 2.5 MG DAILY
     Route: 048
     Dates: start: 20130711
  3. ATORVASTATIN CALCIUM [Concomitant]
     Active Substance: ATORVASTATIN CALCIUM
     Indication: Hypercholesterolaemia
     Dosage: 20 MG, DAILY
     Route: 048
     Dates: start: 20140826
  4. METFORMIN [Concomitant]
     Active Substance: METFORMIN HYDROCHLORIDE
     Indication: Type 2 diabetes mellitus
     Dosage: 1000 MG, BID
     Route: 048
     Dates: start: 20180411, end: 20200608
  5. DAPAGLIFLOZIN [Concomitant]
     Active Substance: DAPAGLIFLOZIN
     Indication: Type 2 diabetes mellitus
     Dosage: 10 MG, DAILY
     Route: 048
     Dates: start: 20181010
  6. KALIUM [POTASSIUM CHLORIDE] [Concomitant]
     Indication: Cardiac failure
     Dosage: 6000 MG, DAILY
     Route: 048
     Dates: start: 20171204
  7. HYDROXOCOBALAM [Concomitant]
     Indication: Vitamin B12 deficiency
     Dosage: 1 MG, EVERY THREE MONTHS
     Route: 030
     Dates: start: 20191017
  8. METOPROLOL FUMARATE [Concomitant]
     Active Substance: METOPROLOL FUMARATE
     Indication: Atrial fibrillation
     Dosage: 25 MG, TWICE DAILY
     Route: 048
     Dates: start: 20200409
  9. POTASSIUM CHLORIDE [Concomitant]
     Active Substance: POTASSIUM CHLORIDE
     Indication: Cardiac failure
     Dosage: 3000 MG, THREE TIMES DAILY
     Route: 065
  10. SPIRONOLACTONE [Concomitant]
     Active Substance: SPIRONOLACTONE
     Indication: Cardiac failure
     Dosage: 25 MG
     Route: 065
     Dates: end: 20200608
  11. AMOXICILLIN [Concomitant]
     Active Substance: AMOXICILLIN
     Indication: Cardiac failure
     Dosage: 1000 MG
     Route: 065
  12. ACETAMINOPHEN [Concomitant]
     Active Substance: ACETAMINOPHEN
     Indication: Cardiac failure
     Dosage: 1000 MG, MAXIMUM 4 TIMES DAILY PRN
     Route: 065
  13. VIALERG [Concomitant]
     Indication: Cardiac failure
     Dosage: 10 MG, PRN
     Route: 065
  14. HYDROCORTISONE SODIUM PHOSPHATE [Concomitant]
     Active Substance: HYDROCORTISONE SODIUM PHOSPHATE
     Indication: Cardiac failure
     Dosage: 2.5 MG, AS NEEDED
     Route: 048
     Dates: start: 20200206
  15. BUMETANIDE [Concomitant]
     Active Substance: BUMETANIDE
     Indication: Cardiac failure
     Dosage: 3 MG, FOUR TIMES DAILY
     Route: 048
     Dates: start: 20200409

REACTIONS (1)
  - Hypokalaemia [Recovered/Resolved]
